FAERS Safety Report 5780935-8 (Version None)
Quarter: 2008Q2

REPORT INFORMATION
  Report Type: 
  Country: None (occurrence: None)
  Receive Date: 20080620
  Receipt Date: 20080611
  Transmission Date: 20081010
  Serious: No
  Sender: FDA-Public Use
  Company Number: CH-PFIZER INC-2008047264

PATIENT
  Sex: Male

DRUGS (2)
  1. DETRUSITOL SR [Suspect]
  2. FRAXIPARINE [Concomitant]
     Dates: start: 20080426, end: 20080526

REACTIONS (1)
  - NO ADVERSE EVENT [None]
